FAERS Safety Report 6058947-9 (Version None)
Quarter: 2009Q1

REPORT INFORMATION
  Report Type: 
  Country: None (occurrence: None)
  Receive Date: 20090130
  Receipt Date: 20090123
  Transmission Date: 20090719
  Serious: Yes (Hospitalization)
  Sender: FDA-Public Use
  Company Number: A0724623A

PATIENT
  Sex: Male
  Weight: 113.6 kg

DRUGS (3)
  1. AVANDIA [Suspect]
     Dosage: 8MG PER DAY
     Route: 048
     Dates: start: 20010401, end: 20070501
  2. METFORMIN [Concomitant]
  3. GLUCOTROL [Concomitant]

REACTIONS (1)
  - MYOCARDIAL INFARCTION [None]
